FAERS Safety Report 6970063-8 (Version None)
Quarter: 2010Q3

REPORT INFORMATION
  Report Type: 
  Country: None (occurrence: None)
  Receive Date: 20100908
  Receipt Date: 20100830
  Transmission Date: 20110219
  Serious: Yes (Hospitalization)
  Sender: FDA-Public Use
  Company Number: FR-ASTRAZENECA-2010SE41062

PATIENT
  Age: 49 Year
  Sex: Male

DRUGS (3)
  1. NEXIUM [Suspect]
     Route: 048
     Dates: start: 20100523, end: 20100605
  2. CIPROFLOXACINE MERCK [Suspect]
     Route: 048
     Dates: start: 20100601, end: 20100605
  3. PIPERACILLINE TAZOBACTAM MYLAN [Suspect]
     Dosage: 4G/500MG, 12G, 4G THREE TIMES A DAY
     Route: 042
     Dates: start: 20100601, end: 20100605

REACTIONS (1)
  - MIXED LIVER INJURY [None]
